FAERS Safety Report 20421405 (Version 1)
Quarter: 2022Q1

REPORT INFORMATION
  Report Type: Spontaneous
  Country: CA (occurrence: CA)
  Receive Date: 20220203
  Receipt Date: 20220203
  Transmission Date: 20220423
  Serious: Yes (Other)
  Sender: FDA-Public Use
  Company Number: CA-NEBO-PC007977

PATIENT
  Age: 29 Year
  Sex: Female

DRUGS (3)
  1. MONOFERRIC [Suspect]
     Active Substance: FERRIC DERISOMALTOSE
     Indication: Iron deficiency anaemia
     Route: 042
  2. ATIVAN [Concomitant]
     Active Substance: LORAZEPAM
  3. FLUOXETINE [Concomitant]
     Active Substance: FLUOXETINE HYDROCHLORIDE

REACTIONS (3)
  - Dysphagia [Recovered/Resolved]
  - Chest pain [Recovered/Resolved]
  - Sensation of foreign body [Recovered/Resolved]
